FAERS Safety Report 22172887 (Version 5)
Quarter: 2023Q4

REPORT INFORMATION
  Report Type: Spontaneous
  Country: US (occurrence: US)
  Receive Date: 20230404
  Receipt Date: 20231222
  Transmission Date: 20240109
  Serious: No
  Sender: FDA-Public Use
  Company Number: US-PFIZER INC-PV202300061969

PATIENT
  Age: 68 Year
  Sex: Female

DRUGS (2)
  1. IBRANCE [Suspect]
     Active Substance: PALBOCICLIB
     Indication: Breast cancer female
     Dosage: 75 MG, CYCLIC, [1 TABLET DAILY FOR 21 DAYS/ TAKE (1) 75 MG TABLET DAILY X 21 DAYS EVERY 28 DAYS]
     Route: 048
  2. IBRANCE [Suspect]
     Active Substance: PALBOCICLIB
     Dosage: 75 MG, CYCLIC, [1 TABLET (OF 75 MG) DAILY FOR 21 DAYS]
     Route: 048
     Dates: start: 20230713

REACTIONS (2)
  - COVID-19 [Unknown]
  - Neoplasm progression [Unknown]
